FAERS Safety Report 20788109 (Version 1)
Quarter: 2022Q2

REPORT INFORMATION
  Report Type: Spontaneous
  Country: US (occurrence: None)
  Receive Date: 20220505
  Receipt Date: 20220505
  Transmission Date: 20220720
  Serious: No
  Sender: FDA-Public Use
  Company Number: US-ROCHE-2852819

PATIENT
  Age: 51 Year
  Sex: Female

DRUGS (5)
  1. OCREVUS [Suspect]
     Active Substance: OCRELIZUMAB
     Indication: Relapsing-remitting multiple sclerosis
     Route: 042
     Dates: start: 201712
  2. BACLOFEN [Concomitant]
     Active Substance: BACLOFEN
  3. VITAMIN B3 [Concomitant]
     Active Substance: NIACIN
  4. GABAPENTIN [Concomitant]
     Active Substance: GABAPENTIN
  5. RITALIN [Concomitant]
     Active Substance: METHYLPHENIDATE HYDROCHLORIDE

REACTIONS (1)
  - Livedo reticularis [Not Recovered/Not Resolved]
